FAERS Safety Report 9168183 (Version 1)
Quarter: 2013Q1

REPORT INFORMATION
  Report Type: Spontaneous
  Country: FR (occurrence: None)
  Receive Date: 20130307
  Receipt Date: 20130307
  Transmission Date: 20140127
  Serious: Yes (Hospitalization)
  Sender: FDA-Public Use
  Company Number: SYM-2013-01381

PATIENT
  Age: 20 Year
  Sex: Female

DRUGS (10)
  1. FLAGYL [Suspect]
     Route: 042
     Dates: start: 20110718, end: 20110720
  2. PROFENID [Suspect]
     Route: 042
     Dates: start: 20110718, end: 20110718
  3. IXPRIM [Suspect]
     Dates: start: 20110718, end: 20110718
  4. AUGMENTIN [Suspect]
     Route: 042
     Dates: start: 20110718, end: 20110718
  5. DEXAMETHASONE (DEXAMETHASONE) (DEXAMETHASONE) [Suspect]
     Dates: start: 20110718, end: 20110718
  6. PROPOFOL [Suspect]
     Route: 042
  7. SUFENTANIL [Suspect]
  8. SEVOFLURANE [Suspect]
  9. ACUPAN [Suspect]
     Dates: start: 20110718, end: 20110718
  10. DROLEPTAN [Suspect]
     Dates: start: 20110718, end: 20110718

REACTIONS (6)
  - Pyrexia [None]
  - Toxic skin eruption [None]
  - Post procedural infection [None]
  - Rash morbilliform [None]
  - Folliculitis [None]
  - Acute generalised exanthematous pustulosis [None]
